FAERS Safety Report 21776925 (Version 1)
Quarter: 2022Q4

REPORT INFORMATION
  Report Type: Other
  Country: US (occurrence: None)
  Receive Date: 20221226
  Receipt Date: 20221226
  Transmission Date: 20230113
  Serious: Yes (Death, Other)
  Sender: FDA-Public Use
  Company Number: US-ROCHE-3228340

PATIENT
  Sex: Female

DRUGS (2)
  1. VALCYTE [Suspect]
     Active Substance: VALGANCICLOVIR HYDROCHLORIDE
     Indication: Liver transplant
     Route: 065
     Dates: start: 20220105
  2. CELLCEPT [Suspect]
     Active Substance: MYCOPHENOLATE MOFETIL
     Indication: Liver transplant
     Dosage: 1000 MG TWICE DAILY
     Route: 065
     Dates: start: 20220105

REACTIONS (5)
  - Death [Fatal]
  - Off label use [Unknown]
  - Off label use [Unknown]
  - Thrombocytopenia [Unknown]
  - Bacteraemia [Unknown]

NARRATIVE: CASE EVENT DATE: 20220212
